FAERS Safety Report 5838212-2 (Version None)
Quarter: 2008Q3

REPORT INFORMATION
  Report Type: 
  Country: None (occurrence: None)
  Receive Date: 20080808
  Receipt Date: 20080729
  Transmission Date: 20090109
  Serious: Yes (Hospitalization)
  Sender: FDA-Public Use
  Company Number: PHEH2008US03122

PATIENT
  Sex: Female
  Weight: 55.102 kg

DRUGS (8)
  1. RECLAST [Suspect]
     Indication: OSTEOPOROSIS
     Dosage: 5 MG, ONCE YEARLY
     Dates: start: 20080228, end: 20080228
  2. LASIX [Concomitant]
  3. DILANTIN                                /AUS/ [Concomitant]
  4. OXYCONTIN [Concomitant]
  5. POTASSIUM CHLORIDE [Concomitant]
  6. OXYCODONE HCL [Concomitant]
  7. TYLENOL W/ CODEINE NO. 4 [Concomitant]
  8. ELAVIL [Concomitant]

REACTIONS (12)
  - ARTHRALGIA [None]
  - BEDRIDDEN [None]
  - BLOOD CHLORIDE DECREASED [None]
  - BLOOD OSMOLARITY DECREASED [None]
  - BLOOD SODIUM DECREASED [None]
  - CHILLS [None]
  - FEELING HOT [None]
  - HAND DEFORMITY [None]
  - HEADACHE [None]
  - HYPOCALCAEMIA [None]
  - HYPOKALAEMIA [None]
  - SWELLING [None]
